FAERS Safety Report 17184933 (Version 1)
Quarter: 2019Q4

REPORT INFORMATION
  Report Type: Spontaneous
  Country: FR (occurrence: FR)
  Receive Date: 20191220
  Receipt Date: 20191220
  Transmission Date: 20200122
  Serious: Yes (Death, Other)
  Sender: FDA-Public Use
  Company Number: FR-MYLANLABS-2019M1125732

PATIENT
  Age: 44 Year
  Sex: Female

DRUGS (9)
  1. TAMOXIFEN [Suspect]
     Active Substance: TAMOXIFEN
     Indication: BREAST CANCER FEMALE
     Dosage: UNK
  2. TRASTUZUMAB. [Suspect]
     Active Substance: TRASTUZUMAB
     Indication: BREAST CANCER FEMALE
     Dosage: UNK (FOR 1 YEAR)
  3. DOXORUBICIN HYDROCHLORIDE. [Suspect]
     Active Substance: DOXORUBICIN HYDROCHLORIDE
     Indication: BREAST CANCER FEMALE
     Dosage: UNK UNK, CYCLE, CYCLIC (6 CYCLES)
  4. DOCETAXEL. [Suspect]
     Active Substance: DOCETAXEL
     Indication: BREAST CANCER FEMALE
     Dosage: UNK UNK, CYCLIC (6 CYCLES), CYCLE
  5. ARACYTINE [Concomitant]
     Active Substance: CYTARABINE
     Indication: ACUTE MYELOID LEUKAEMIA
     Dosage: UNK (CYCLIC (HIGH DOSE))
  6. LAPATINIB [Suspect]
     Active Substance: LAPATINIB
     Indication: BREAST CANCER FEMALE
     Dosage: UNK (FOR 1 YEAR)
  7. ARACYTINE [Concomitant]
     Active Substance: CYTARABINE
     Dosage: 200 MILLIGRAM/SQ. METER, CYCLE (CYCLIC (3+7)
  8. DAUNORUBICIN [Suspect]
     Active Substance: DAUNORUBICIN
     Indication: ACUTE MYELOID LEUKAEMIA
     Dosage: UNK UNK, CYCLE,CYCLIC CYCLIC (3+7)
  9. CYCLOPHOSPHAMIDE. [Suspect]
     Active Substance: CYCLOPHOSPHAMIDE
     Indication: BREAST CANCER FEMALE
     Dosage: UNK UNK, CYCLE, CYCLIC (6 CYCLES)

REACTIONS (4)
  - Acute myeloid leukaemia [Fatal]
  - Second primary malignancy [Fatal]
  - Cardiotoxicity [Fatal]
  - Cardiac arrest [Fatal]

NARRATIVE: CASE EVENT DATE: 20090901
